FAERS Safety Report 8399673-0 (Version None)
Quarter: 2012Q2

REPORT INFORMATION
  Report Type: 
  Country: None (occurrence: None)
  Receive Date: 20120531
  Receipt Date: 20120517
  Transmission Date: 20120825
  Serious: Yes (Hospitalization, Other)
  Sender: FDA-Public Use
  Company Number: JP-UCBSA-057398

PATIENT
  Age: 69 Year
  Sex: Female

DRUGS (16)
  1. TRAVELMIN [Suspect]
     Indication: ANXIETY
     Dosage: DAILY DOSE: 2 DF
     Route: 048
     Dates: start: 20111116
  2. FAMOTIDINE [Suspect]
     Indication: GASTRITIS PROPHYLAXIS
     Dosage: DAILY DOSE: 40 MG
     Route: 048
     Dates: start: 20090813
  3. LIVALO [Suspect]
     Indication: HYPERCHOLESTEROLAEMIA
     Dosage: DAILY DOSE: 1 MG
     Route: 048
     Dates: start: 20101007
  4. ACTONEL [Suspect]
     Indication: OSTEOPOROSIS PROPHYLAXIS
     Route: 048
     Dates: start: 20090813
  5. PREDNISOLONE [Suspect]
     Indication: RHEUMATOID ARTHRITIS
     Dosage: DAILY DOSE: 4 MG
     Route: 048
     Dates: start: 20090813
  6. CIMZIA [Suspect]
     Indication: RHEUMATOID ARTHRITIS
     Route: 058
     Dates: start: 20090813
  7. FERROUS CITRATE [Suspect]
     Indication: ANAEMIA PROPHYLAXIS
     Dosage: DAILY DOSE: 50 MG
     Route: 048
     Dates: start: 20120126
  8. MEILAX [Suspect]
     Indication: ANXIETY
     Dosage: DAILY DOSE: 1 MG
     Route: 048
     Dates: start: 20100520
  9. CELEBREX [Suspect]
     Indication: RHEUMATOID ARTHRITIS
     Dosage: DAILY DOSE: 200 MG
     Route: 048
     Dates: start: 20091106
  10. DEPAS [Suspect]
     Indication: ANXIETY
     Dosage: DAILY DOSE: 0.5 MG
     Route: 048
     Dates: start: 20111207
  11. MYONAL [Suspect]
     Indication: ANXIETY
     Dosage: DAILY DOSE: 50 MG
     Route: 048
     Dates: start: 20111207
  12. KETOPROFEN [Suspect]
     Indication: RHEUMATOID ARTHRITIS
     Dosage: AS NEEDED
     Route: 062
     Dates: start: 20101104
  13. POSTERISAN [Suspect]
     Indication: ANAL FISSURE
     Dosage: DAILY DOSE: 2 G
     Route: 061
     Dates: start: 20101228
  14. ASPIRIN [Suspect]
     Indication: CEREBRAL INFARCTION
     Dates: start: 20120421
  15. HALCION [Suspect]
     Indication: INSOMNIA
     Dosage: DAILY DOSE: 0.25 MG
     Route: 048
     Dates: start: 20090813
  16. VOLTAREN [Suspect]
     Indication: RHEUMATOID ARTHRITIS
     Dosage: DAILY DOSE: 50 MG
     Route: 054
     Dates: start: 20100209

REACTIONS (2)
  - ARTHRITIS BACTERIAL [None]
  - GASTRIC CANCER [None]
